FAERS Safety Report 11230879 (Version 1)
Quarter: 2015Q2

REPORT INFORMATION
  Report Type: Spontaneous
  Country: US (occurrence: None)
  Receive Date: 20150629
  Receipt Date: 20150629
  Transmission Date: 20150821
  Serious: Yes (Hospitalization, Disabling)
  Sender: FDA-Public Use
  Company Number: None

PATIENT
  Age: 26 Year
  Sex: Male
  Weight: 63.5 kg

DRUGS (5)
  1. BUPROPION [Suspect]
     Active Substance: BUPROPION
     Indication: SMOKING CESSATION THERAPY
     Route: 048
     Dates: start: 20140903, end: 20150318
  2. TAGAMENT [Concomitant]
  3. CULTREL PRO BIOTICS [Concomitant]
  4. PAIN KILLERS [Concomitant]
     Active Substance: UNSPECIFIED INGREDIENT
  5. MUSCLE RELAXERS [Concomitant]
     Active Substance: UNSPECIFIED INGREDIENT

REACTIONS (5)
  - Myalgia [None]
  - Blood bilirubin abnormal [None]
  - Liver function test abnormal [None]
  - Arthralgia [None]
  - Pain [None]

NARRATIVE: CASE EVENT DATE: 20141119
